FAERS Safety Report 22150929 (Version 2)
Quarter: 2023Q2

REPORT INFORMATION
  Report Type: Spontaneous
  Country: US (occurrence: US)
  Receive Date: 20230329
  Receipt Date: 20230405
  Transmission Date: 20230721
  Serious: Yes (Other)
  Sender: FDA-Public Use
  Company Number: US-TEVA-2023-US-2870148

PATIENT
  Age: 37 Year
  Sex: Female

DRUGS (11)
  1. LORAZEPAM [Suspect]
     Active Substance: LORAZEPAM
     Indication: Drug withdrawal syndrome
     Route: 065
  2. ARIPIPRAZOLE [Suspect]
     Active Substance: ARIPIPRAZOLE
     Indication: Drug withdrawal syndrome
     Route: 065
  3. ESCITALOPRAM [Suspect]
     Active Substance: ESCITALOPRAM OXALATE
     Indication: Drug withdrawal syndrome
     Route: 065
  4. ESOMEPRAZOLE [Suspect]
     Active Substance: ESOMEPRAZOLE
     Indication: Drug withdrawal syndrome
     Route: 065
  5. ZOLPIDEM [Suspect]
     Active Substance: ZOLPIDEM TARTRATE
     Indication: Drug withdrawal syndrome
     Route: 065
  6. MAGNESIUM [Suspect]
     Active Substance: MAGNESIUM
     Indication: Drug withdrawal syndrome
     Route: 065
  7. DOMPERIDONE [Suspect]
     Active Substance: DOMPERIDONE
     Indication: Galactorrhoea
     Dosage: 90 MILLIGRAM DAILY; ONCE A DAY
     Route: 065
     Dates: start: 202105
  8. DOMPERIDONE [Suspect]
     Active Substance: DOMPERIDONE
     Indication: Galactorrhoea
     Dosage: 80 MILLIGRAM DAILY; TAPERED
     Route: 065
     Dates: start: 2021
  9. DOMPERIDONE [Suspect]
     Active Substance: DOMPERIDONE
     Indication: Galactorrhoea
     Dosage: 70 MILLIGRAM DAILY; TAPERED
     Route: 065
     Dates: start: 2021
  10. DOMPERIDONE [Suspect]
     Active Substance: DOMPERIDONE
     Indication: Galactorrhoea
     Dosage: 120 MILLIGRAM DAILY; INCREASED DOSAGE
     Route: 065
     Dates: start: 2021
  11. DOMPERIDONE [Suspect]
     Active Substance: DOMPERIDONE
     Indication: Galactorrhoea
     Dosage: 150 MILLIGRAM DAILY; INCREASED HER DOSE
     Route: 065
     Dates: start: 2021

REACTIONS (11)
  - Homicidal ideation [Not Recovered/Not Resolved]
  - Suicidal ideation [Recovered/Resolved]
  - Anxiety [Not Recovered/Not Resolved]
  - Tinnitus [Recovered/Resolved]
  - Insomnia [Recovered/Resolved]
  - Urine output increased [Recovered/Resolved]
  - Agitation [Recovered/Resolved]
  - Drug withdrawal syndrome [Unknown]
  - Intentional product misuse [Unknown]
  - Drug ineffective [Unknown]
  - Off label use [Unknown]
